FAERS Safety Report 13070826 (Version 3)
Quarter: 2017Q1

REPORT INFORMATION
  Report Type: Report from Study
  Country: JP (occurrence: JP)
  Receive Date: 20161229
  Receipt Date: 20170308
  Transmission Date: 20170428
  Serious: Yes (Hospitalization)
  Sender: FDA-Public Use
  Company Number: JP-ROCHE-1873315

PATIENT
  Age: 61 Year
  Sex: Female
  Weight: 54 kg

DRUGS (12)
  1. NEXIUM [Concomitant]
     Active Substance: ESOMEPRAZOLE MAGNESIUM
     Route: 048
  2. CARNACULIN [Concomitant]
     Active Substance: KALLIDINOGENASE
     Route: 048
  3. LIPITOR [Concomitant]
     Active Substance: ATORVASTATIN CALCIUM
     Route: 048
  4. CINAL [Concomitant]
     Active Substance: ASCORBIC ACID\CALCIUM PANTOTHENATE
     Route: 048
  5. BAYASPIRIN [Concomitant]
     Active Substance: ASPIRIN
     Route: 048
  6. MAGNESIUM OXIDE. [Concomitant]
     Active Substance: MAGNESIUM OXIDE
     Route: 048
  7. FERROMIA [Concomitant]
     Active Substance: FERROUS CITRATE
     Route: 048
  8. HYALEIN [Concomitant]
     Active Substance: HYALURONATE SODIUM
     Dosage: DOSAGE IS UNCERTAIN.
     Route: 047
  9. KALIMATE [Concomitant]
     Active Substance: CALCIUM POLYSTYRENE SULFONATE
     Route: 048
  10. TOCILIZUMAB [Suspect]
     Active Substance: TOCILIZUMAB
     Indication: TAKAYASU^S ARTERITIS
     Dosage: DOSAGE IS UNCERTAIN.?MOST RECENT DOSE ON 22/DEC/2016.
     Route: 041
     Dates: start: 20130513
  11. BONALON [Concomitant]
     Active Substance: ALENDRONATE SODIUM
     Route: 048
  12. OLMETEC [Concomitant]
     Active Substance: OLMESARTAN MEDOXOMIL
     Dosage: REPORTED AS OLMETEC OD
     Route: 048

REACTIONS (1)
  - Intraductal proliferative breast lesion [Recovering/Resolving]

NARRATIVE: CASE EVENT DATE: 20170208
